FAERS Safety Report 8122823-8 (Version None)
Quarter: 2012Q1

REPORT INFORMATION
  Report Type: 
  Country: None (occurrence: None)
  Receive Date: 20120208
  Receipt Date: 20120201
  Transmission Date: 20120608
  Serious: Yes (Hospitalization)
  Sender: FDA-Public Use
  Company Number: IT-PFIZER INC-2012029747

PATIENT
  Age: 52 Year
  Sex: Female

DRUGS (1)
  1. EPIRUBICIN HYDROCHLORIDE [Suspect]
     Dosage: UNK

REACTIONS (2)
  - INTESTINAL ISCHAEMIA [None]
  - HYPOVOLAEMIC SHOCK [None]
